FAERS Safety Report 10147205 (Version 1)
Quarter: 2014Q2

REPORT INFORMATION
  Report Type: Spontaneous
  Country: US (occurrence: US)
  Receive Date: 20140501
  Receipt Date: 20140501
  Transmission Date: 20141212
  Serious: No
  Sender: FDA-Public Use
  Company Number: US-B.I. PHARMACEUTICALS,INC./RIDGEFIELD-2014-BI-18228BP

PATIENT
  Age: 88 Year
  Sex: Female

DRUGS (12)
  1. PRADAXA [Suspect]
     Indication: ATRIAL FIBRILLATION
     Dosage: 300 MG
     Route: 048
     Dates: start: 201304, end: 20140321
  2. PRADAXA [Suspect]
     Dosage: 150 MG
     Route: 048
     Dates: start: 20140322
  3. LIPITOR [Concomitant]
     Dosage: 40 MG
     Route: 048
  4. BIOTIN [Concomitant]
     Indication: ALOPECIA
     Dosage: 10 MG
     Route: 048
  5. CALCIUM [Concomitant]
     Indication: SUPPLEMENTATION THERAPY
     Dosage: 600 MG
     Route: 048
  6. CARVEDILOL [Concomitant]
     Dosage: 50 MG
     Route: 048
  7. COLACE [Concomitant]
     Indication: FAECES HARD
     Dosage: 200 MG
     Route: 048
  8. HYDRALAZINE [Concomitant]
     Dosage: 30 MG
     Route: 048
  9. LOSARTAN [Concomitant]
     Indication: CARDIAC DISORDER
     Dosage: 100 MG
     Route: 048
  10. MULTIVITAMIN [Concomitant]
     Indication: SUPPLEMENTATION THERAPY
     Dosage: 2 ANZ
     Route: 048
  11. NITROGLYCERINE [Concomitant]
     Indication: CHEST PAIN
     Route: 060
  12. OMEGA 3 FISH OIL [Concomitant]
     Indication: SUPPLEMENTATION THERAPY
     Dosage: 1000 MG
     Route: 048

REACTIONS (1)
  - Urinary incontinence [Not Recovered/Not Resolved]
